FAERS Safety Report 18842573 (Version 1)
Quarter: 2021Q1

REPORT INFORMATION
  Report Type: Spontaneous
  Country: JP (occurrence: JP)
  Receive Date: 20210203
  Receipt Date: 20210203
  Transmission Date: 20210419
  Serious: Yes (Hospitalization)
  Sender: FDA-Public Use
  Company Number: JP-EISAI MEDICAL RESEARCH-EC-2020-085888

PATIENT
  Age: 81 Year
  Sex: Male

DRUGS (1)
  1. LENVIMA [Suspect]
     Active Substance: LENVATINIB
     Indication: HEPATOCELLULAR CARCINOMA
     Dosage: 5 DAYS ON/2 DAYS OFF
     Route: 048
     Dates: start: 20201121, end: 202012

REACTIONS (4)
  - Ammonia increased [Recovered/Resolved]
  - Malaise [Recovered/Resolved]
  - Abdominal distension [Recovering/Resolving]
  - Dehydration [Recovered/Resolved]

NARRATIVE: CASE EVENT DATE: 202012
